FAERS Safety Report 25143909 (Version 2)
Quarter: 2025Q2

REPORT INFORMATION
  Report Type: Spontaneous
  Country: US (occurrence: US)
  Receive Date: 20250401
  Receipt Date: 20250425
  Transmission Date: 20250717
  Serious: Yes (Other)
  Sender: ROCHE
  Company Number: US-ROCHE-10000242392

PATIENT
  Sex: Female

DRUGS (1)
  1. XOLAIR [Suspect]
     Active Substance: OMALIZUMAB
     Indication: Urticaria
     Dosage: STRENGTH: 300 MG/2 ML
     Route: 058
     Dates: start: 202412

REACTIONS (9)
  - Anaphylactic reaction [Unknown]
  - Infection [Unknown]
  - Hypoaesthesia [Unknown]
  - Skin discolouration [Unknown]
  - Anxiety [Unknown]
  - Depression [Unknown]
  - Irritability [Unknown]
  - Mood swings [Unknown]
  - Epistaxis [Unknown]
